FAERS Safety Report 8512305-3 (Version None)
Quarter: 2012Q3

REPORT INFORMATION
  Report Type: 
  Country: None (occurrence: None)
  Receive Date: 20120716
  Receipt Date: 20120706
  Transmission Date: 20120928
  Serious: Yes (Hospitalization)
  Sender: FDA-Public Use
  Company Number: US-ACTELION-A-US2012-61519

PATIENT

DRUGS (6)
  1. ALDACTONE [Concomitant]
  2. SILDENAFIL [Concomitant]
     Dosage: UNK
  3. LASIX [Concomitant]
  4. DIGOXIN [Concomitant]
  5. EPOPROSTENOL SODIUM [Suspect]
     Indication: PULMONARY ARTERIAL HYPERTENSION
     Dosage: 59.5 NG/KG, PER MIN
     Route: 042
     Dates: start: 20111103
  6. ASPIRIN [Concomitant]

REACTIONS (5)
  - ERYTHEMA [None]
  - PAIN IN EXTREMITY [None]
  - PULMONARY HYPERTENSION [None]
  - CELLULITIS [None]
  - CONDITION AGGRAVATED [None]
